FAERS Safety Report 7248993 (Version 5)
Quarter: 2014Q3

REPORT INFORMATION
  Report Type: Report from Study
  Country: US (occurrence: US)
  Receive Date: 20100119
  Receipt Date: 20140909
  Transmission Date: 20150326
  Serious: Yes (Hospitalization)
  Sender: FDA-Public Use
  Company Number: US-BIOGENIDEC-2010BI001650

PATIENT
  Age: 49 Year
  Sex: Female

DRUGS (1)
  1. AVONEX [Suspect]
     Active Substance: INTERFERON BETA-1A
     Indication: MULTIPLE SCLEROSIS
     Route: 030
     Dates: start: 19961101, end: 20130828

REACTIONS (8)
  - Intervertebral disc operation [Recovered/Resolved]
  - Lumbar puncture [Recovered/Resolved]
  - Adverse drug reaction [Recovered/Resolved]
  - Arthritis [Not Recovered/Not Resolved]
  - Peroneal nerve palsy postoperative [Not Recovered/Not Resolved]
  - Device breakage [Not Recovered/Not Resolved]
  - Spinal column stenosis [Not Recovered/Not Resolved]
  - Scar [Not Recovered/Not Resolved]

NARRATIVE: CASE EVENT DATE: 20000120
